FAERS Safety Report 18757643 (Version 2)
Quarter: 2021Q1

REPORT INFORMATION
  Report Type: Spontaneous
  Country: DE (occurrence: DE)
  Receive Date: 20210119
  Receipt Date: 20210203
  Transmission Date: 20210419
  Serious: Yes (Life-Threatening, Hospitalization, Other)
  Sender: FDA-Public Use
  Company Number: DE-TORRENT-00019427

PATIENT
  Age: 53 Year
  Sex: Female

DRUGS (13)
  1. BISOPROLOL [Suspect]
     Active Substance: BISOPROLOL
     Indication: PRODUCT USED FOR UNKNOWN INDICATION
     Dosage: 1X5MG
     Route: 065
  2. BUPIVACAINE HYDROCHLORIDE. [Suspect]
     Active Substance: BUPIVACAINE HYDROCHLORIDE
     Indication: INFILTRATION ANAESTHESIA
     Dosage: ON JANUARY 15 AND 17
     Route: 008
  3. LEVOTHYROXINE SODIUM ELI [Suspect]
     Active Substance: LEVOTHYROXINE SODIUM
     Indication: PRODUCT USED FOR UNKNOWN INDICATION
     Dosage: 125 MCG, QD
     Route: 065
  4. AMLODIPINE [Suspect]
     Active Substance: AMLODIPINE BESYLATE
     Indication: PRODUCT USED FOR UNKNOWN INDICATION
     Dosage: 1X5MG
     Route: 065
  5. CELECOXIB. [Suspect]
     Active Substance: CELECOXIB
     Indication: PAIN
     Dosage: 100 MG, BID (2X100MG, P.O.)
     Route: 048
  6. PRILOCAINE HYDROCHLORIDE. [Suspect]
     Active Substance: PRILOCAINE HYDROCHLORIDE
     Indication: INFILTRATION ANAESTHESIA
     Dosage: ON JANUARY 15 AND 17
     Route: 008
  7. TRIAMCINOLONE [Suspect]
     Active Substance: TRIAMCINOLONE
     Indication: INFILTRATION ANAESTHESIA
     Dosage: JANUARY 15 AND 17
     Route: 050
  8. TORASEMIDE [Suspect]
     Active Substance: TORSEMIDE
     Indication: PRODUCT USED FOR UNKNOWN INDICATION
     Dosage: 1X5MG
     Route: 065
  9. CANDESARTAN. [Suspect]
     Active Substance: CANDESARTAN
     Indication: PRODUCT USED FOR UNKNOWN INDICATION
     Dosage: 1X16MG
     Route: 065
  10. DEXMETHASONE [Suspect]
     Active Substance: DEXAMETHASONE
     Indication: INFILTRATION ANAESTHESIA
     Dosage: UNKNOWN
     Route: 050
  11. METAMIZOLE [Suspect]
     Active Substance: METAMIZOLE
     Indication: PAIN
     Dosage: 4X1G INTRAVENOUSLY
     Route: 042
  12. VALPROATE [Suspect]
     Active Substance: VALPROIC ACID
     Indication: PRODUCT USED FOR UNKNOWN INDICATION
     Dosage: 2X300MG
     Route: 065
  13. OXYCODONE/NALOXONE [Suspect]
     Active Substance: NALOXONE HYDROCHLORIDE\OXYCODONE HYDROCHLORIDE
     Indication: PAIN
     Dosage: 20 MG, BID (2X20MG P.O.)
     Route: 048

REACTIONS (1)
  - Necrotising fasciitis [Recovering/Resolving]
